FAERS Safety Report 15548859 (Version 1)
Quarter: 2018Q4

REPORT INFORMATION
  Report Type: Spontaneous
  Country: US (occurrence: US)
  Receive Date: 20181025
  Receipt Date: 20181025
  Transmission Date: 20190205
  Serious: No
  Sender: FDA-Public Use
  Company Number: US-ASTRAZENECA-2018SF06624

PATIENT
  Sex: Female
  Weight: 134.7 kg

DRUGS (2)
  1. TUDORZA PRESSAIR [Suspect]
     Active Substance: ACLIDINIUM BROMIDE
     Indication: CHRONIC OBSTRUCTIVE PULMONARY DISEASE
     Route: 055
  2. POTASSIUM [Concomitant]
     Active Substance: POTASSIUM
     Indication: ILL-DEFINED DISORDER
     Route: 065

REACTIONS (3)
  - Intentional product misuse [Unknown]
  - Device malfunction [Unknown]
  - Hypoacusis [Unknown]
